FAERS Safety Report 10943606 (Version 2)
Quarter: 2015Q2

REPORT INFORMATION
  Report Type: Spontaneous
  Country: US (occurrence: US)
  Receive Date: 20150322
  Receipt Date: 20150526
  Transmission Date: 20150821
  Serious: No
  Sender: FDA-Public Use
  Company Number: US-JNJFOC-20140603046

PATIENT
  Age: 67 Year
  Sex: Male
  Weight: 73.03 kg

DRUGS (7)
  1. RISPERIDONE. [Suspect]
     Active Substance: RISPERIDONE
     Indication: ANXIETY
     Route: 065
  2. LUTEIN [Concomitant]
     Active Substance: LUTEIN
     Indication: MUSCLE ATROPHY
     Route: 065
     Dates: start: 201401
  3. MAGNESIUM [Concomitant]
     Active Substance: MAGNESIUM
     Indication: SLEEP DISORDER
     Route: 065
  4. MAGNESIUM [Concomitant]
     Active Substance: MAGNESIUM
     Indication: CONSTIPATION
     Route: 065
  5. UNSPECIFIED GENERIC RISPERIDONE [Suspect]
     Active Substance: RISPERIDONE
     Indication: SCHIZOPHRENIA
     Route: 048
     Dates: start: 2014
  6. RISPERDAL CONSTA [Suspect]
     Active Substance: RISPERIDONE
     Indication: SCHIZOPHRENIA
     Route: 030
     Dates: start: 200510
  7. IRON [Concomitant]
     Active Substance: IRON
     Indication: NUTRITIONAL SUPPLEMENTATION
     Route: 065

REACTIONS (17)
  - Dysphonia [Not Recovered/Not Resolved]
  - Application site rash [Not Recovered/Not Resolved]
  - Insomnia [Unknown]
  - Muscle twitching [Unknown]
  - Myalgia [Unknown]
  - Psychotic disorder [Not Recovered/Not Resolved]
  - Drug ineffective [Recovered/Resolved]
  - Application site pain [Not Recovered/Not Resolved]
  - Anxiety [Recovered/Resolved]
  - Injection site haemorrhage [Unknown]
  - Intentional product misuse [Not Recovered/Not Resolved]
  - Mental disorder [Unknown]
  - Fear [Not Recovered/Not Resolved]
  - Application site mass [Not Recovered/Not Resolved]
  - Needle issue [Recovered/Resolved]
  - Drug administration error [Not Recovered/Not Resolved]
  - Underdose [Not Recovered/Not Resolved]

NARRATIVE: CASE EVENT DATE: 2014
